FAERS Safety Report 14155701 (Version 17)
Quarter: 2020Q4

REPORT INFORMATION
  Report Type: Report from Study
  Country: DE (occurrence: DE)
  Receive Date: 20171103
  Receipt Date: 20201207
  Transmission Date: 20210113
  Serious: Yes (Other)
  Sender: FDA-Public Use
  Company Number: PHHY2017DE069415

PATIENT
  Age: 59 Year
  Sex: Male
  Weight: 100 kg

DRUGS (13)
  1. AFINITOR [Suspect]
     Active Substance: EVEROLIMUS
     Indication: METASTATIC RENAL CELL CARCINOMA
     Dosage: 10 MG, QD
     Route: 048
     Dates: start: 20170405, end: 20170501
  2. PANTOZOL [Concomitant]
     Active Substance: PANTOPRAZOLE SODIUM
     Indication: PROPHYLAXIS
     Dosage: 20 MG, QD
     Route: 048
     Dates: start: 20181115
  3. AFINITOR [Suspect]
     Active Substance: EVEROLIMUS
     Dosage: 10 MG, QD
     Route: 048
     Dates: start: 20170307, end: 20170404
  4. EXFORGE [Concomitant]
     Active Substance: AMLODIPINE BESYLATE\VALSARTAN
     Indication: HYPERTENSION
     Dosage: 160 MG, QD
     Route: 048
     Dates: start: 20120101, end: 20180201
  5. AFINITOR [Suspect]
     Active Substance: EVEROLIMUS
     Indication: RENAL CELL CARCINOMA
     Dosage: 10 MG, QD
     Route: 048
     Dates: start: 20170207, end: 20170306
  6. AFINITOR [Suspect]
     Active Substance: EVEROLIMUS
     Dosage: 10 MG, QD
     Route: 048
     Dates: start: 20170502, end: 20170606
  7. PANTOZOL [Concomitant]
     Active Substance: PANTOPRAZOLE SODIUM
     Indication: REFLUX GASTRITIS
     Dosage: 40 MG, QD
     Route: 048
     Dates: start: 20140101, end: 20180101
  8. AFINITOR [Suspect]
     Active Substance: EVEROLIMUS
     Dosage: 10 MG, QD
     Route: 048
     Dates: start: 20170607, end: 20170807
  9. AFINITOR [Suspect]
     Active Substance: EVEROLIMUS
     Dosage: 10 MG, QD
     Route: 048
     Dates: start: 20170905
  10. L-THYROXIN [Concomitant]
     Active Substance: LEVOTHYROXINE SODIUM
     Indication: PROPHYLAXIS
     Dosage: 175 UG, QD
     Route: 065
     Dates: start: 20180903, end: 20190201
  11. AFINITOR [Suspect]
     Active Substance: EVEROLIMUS
     Dosage: 10 MG, QD
     Route: 048
     Dates: start: 20170808, end: 20170904
  12. NOVALGIN [Concomitant]
     Indication: PROPHYLAXIS
     Dosage: 500 MG, PRN
     Route: 048
     Dates: start: 20150601
  13. DAFIRO [Concomitant]
     Active Substance: AMLODIPINE\VALSARTAN
     Indication: HYPERTENSION
     Dosage: 160 MG, QD
     Route: 048
     Dates: start: 2012

REACTIONS (25)
  - LDL/HDL ratio increased [Unknown]
  - Pain in extremity [Recovered/Resolved]
  - Diarrhoea [Not Recovered/Not Resolved]
  - Osteonecrosis [Not Recovered/Not Resolved]
  - Glomerular filtration rate decreased [Unknown]
  - Mean cell volume decreased [Unknown]
  - Low density lipoprotein increased [Unknown]
  - Pustule [Recovered/Resolved]
  - Decreased appetite [Recovered/Resolved]
  - Hypercholesterolaemia [Recovered/Resolved]
  - C-reactive protein increased [Unknown]
  - Mean cell haemoglobin decreased [Unknown]
  - Blood creatinine increased [Recovering/Resolving]
  - Oedema peripheral [Recovered/Resolved]
  - Dysgeusia [Recovered/Resolved]
  - Ageusia [Recovered/Resolved]
  - Papule [Unknown]
  - Haematocrit decreased [Unknown]
  - Anaemia [Recovered/Resolved]
  - Dyspnoea exertional [Recovered/Resolved]
  - Osteonecrosis [Recovered/Resolved]
  - Arthralgia [Recovered/Resolved]
  - Taste disorder [Recovered/Resolved]
  - Red blood cell count decreased [Unknown]
  - Bone pain [Recovered/Resolved]

NARRATIVE: CASE EVENT DATE: 20170307
